FAERS Safety Report 9381684 (Version 2)
Quarter: 2013Q3

REPORT INFORMATION
  Report Type: Spontaneous
  Country: FR (occurrence: FR)
  Receive Date: 20130703
  Receipt Date: 20130809
  Transmission Date: 20140515
  Serious: Yes (Other)
  Sender: FDA-Public Use
  Company Number: FR-TEVA-416695ISR

PATIENT
  Age: 68 Year
  Sex: Female

DRUGS (1)
  1. CLARITHROMYCIN TEVA 500 MG [Suspect]
     Indication: BRONCHITIS
     Dosage: 2 DOSAGE FORMS DAILY;
     Route: 048
     Dates: start: 20130116, end: 20130122

REACTIONS (4)
  - Diarrhoea [Unknown]
  - Oral fungal infection [Unknown]
  - Vulvovaginal mycotic infection [Unknown]
  - Hyposmia [Unknown]
